FAERS Safety Report 13288442 (Version 1)
Quarter: 2017Q1

REPORT INFORMATION
  Report Type: Spontaneous
  Country: IT (occurrence: IT)
  Receive Date: 20170302
  Receipt Date: 20170302
  Transmission Date: 20170428
  Serious: Yes (Hospitalization)
  Sender: FDA-Public Use
  Company Number: IT-SUN PHARMACEUTICAL INDUSTRIES LTD-2017RR-134698

PATIENT
  Age: 86 Year
  Sex: Female

DRUGS (6)
  1. SINTROM [Interacting]
     Active Substance: ACENOCOUMAROL
     Indication: ATRIAL FIBRILLATION
     Dosage: 1 MG DAILY
     Route: 048
     Dates: start: 20140101, end: 20170213
  2. CLARITHROMYCIN. [Suspect]
     Active Substance: CLARITHROMYCIN
     Indication: PNEUMONIA BACTERIAL
     Dosage: 500 MG DAILY
     Route: 048
     Dates: start: 20170206, end: 20170209
  3. TACHIPIRINA [Interacting]
     Active Substance: ACETAMINOPHEN
     Indication: PYREXIA
     Dosage: 500 MG DAILY
     Route: 048
     Dates: start: 20170206, end: 20170213
  4. GASTROLOC 20 MG [Concomitant]
     Indication: PRODUCT USED FOR UNKNOWN INDICATION
     Route: 065
  5. CONTROL 1 MG [Concomitant]
     Indication: PRODUCT USED FOR UNKNOWN INDICATION
     Route: 065
  6. EUTIROX 50 MICROGRAMS [Concomitant]
     Indication: PRODUCT USED FOR UNKNOWN INDICATION
     Route: 065

REACTIONS (4)
  - Drug interaction [None]
  - Weight decreased [Recovered/Resolved]
  - Pyrexia [Recovered/Resolved]
  - Respiratory depression [Recovered/Resolved]

NARRATIVE: CASE EVENT DATE: 20170213
